FAERS Safety Report 15091508 (Version 1)
Quarter: 2018Q2

REPORT INFORMATION
  Report Type: Spontaneous
  Country: US (occurrence: US)
  Receive Date: 20180608
  Receipt Date: 20180608
  Transmission Date: 20180711
  Serious: Yes (Death, Hospitalization)
  Sender: FDA-Public Use
  Company Number: None

PATIENT
  Age: 19 Year
  Sex: Male
  Weight: 49.9 kg

DRUGS (8)
  1. DOXORUBICIN HYDROCHLORIDE. [Suspect]
     Active Substance: DOXORUBICIN HYDROCHLORIDE
     Dates: end: 20180406
  2. THIOGUANINE (6-TG) [Suspect]
     Active Substance: THIOGUANINE ANHYDROUS
     Dates: end: 20180503
  3. VINCRISTINE SULFATE. [Suspect]
     Active Substance: VINCRISTINE SULFATE
     Dates: end: 20180504
  4. DEXAMETHASONE. [Suspect]
     Active Substance: DEXAMETHASONE
     Dates: end: 20180412
  5. ONCASPAR [Suspect]
     Active Substance: PEGASPARGASE
     Dates: end: 20180409
  6. CYTARABINE. [Suspect]
     Active Substance: CYTARABINE
     Dates: end: 20180430
  7. CYCLOPHOSPHAMIDE. [Suspect]
     Active Substance: CYCLOPHOSPHAMIDE
     Dates: end: 20180420
  8. METHOTREXATE. [Suspect]
     Active Substance: METHOTREXATE
     Dates: end: 20180427

REACTIONS (13)
  - Ejection fraction decreased [None]
  - Neutropenia [None]
  - Febrile neutropenia [None]
  - Metastases to skin [None]
  - Metastases to eye [None]
  - Pulmonary oedema [None]
  - Lactic acidosis [None]
  - Hypotension [None]
  - Fungaemia [None]
  - Candida infection [None]
  - Renal injury [None]
  - Cytomegalovirus viraemia [None]
  - Cardiac arrest [None]

NARRATIVE: CASE EVENT DATE: 20180606
